FAERS Safety Report 4951301-X (Version None)
Quarter: 2006Q1

REPORT INFORMATION
  Report Type: 
  Country: None (occurrence: None)
  Receive Date: 20060323
  Receipt Date: 20060314
  Transmission Date: 20060701
  Serious: Yes (Hospitalization)
  Sender: FDA-Public Use
  Company Number: FR-JNJFOC-20060303756

PATIENT
  Age: 71 Year
  Sex: Female

DRUGS (8)
  1. REMICADE [Suspect]
     Indication: RHEUMATOID ARTHRITIS
     Route: 042
  2. CORTANCYL [Suspect]
     Indication: RHEUMATOID ARTHRITIS
     Route: 048
  3. IMUREL [Suspect]
     Indication: RHEUMATOID ARTHRITIS
     Route: 048
  4. VOLTAREN [Concomitant]
     Indication: RHEUMATOID ARTHRITIS
     Route: 048
  5. COAPROVEL [Concomitant]
     Indication: HEPATITIS C
     Route: 048
  6. COAPROVEL [Concomitant]
     Indication: PORTAL HYPERTENSION
     Route: 048
  7. PROPRANOLOL [Concomitant]
     Indication: HEPATITIS C
     Route: 048
  8. PROPRANOLOL [Concomitant]
     Indication: PORTAL HYPERTENSION
     Route: 048

REACTIONS (3)
  - COLITIS ISCHAEMIC [None]
  - GASTROENTERITIS [None]
  - LISTERIOSIS [None]
